FAERS Safety Report 24379325 (Version 1)
Quarter: 2024Q3

REPORT INFORMATION
  Report Type: Spontaneous
  Country: HU (occurrence: DE)
  Receive Date: 20240930
  Receipt Date: 20240930
  Transmission Date: 20241016
  Serious: Yes (Other)
  Sender: SUNOVION
  Company Number: DE-RICHTER-2024-GR-009965

PATIENT

DRUGS (1)
  1. ESTRADIOL\NORETHINDRONE ACETATE\RELUGOLIX [Suspect]
     Active Substance: ESTRADIOL\NORETHINDRONE ACETATE\RELUGOLIX
     Indication: Uterine leiomyoma
     Dosage: 1 TABLET PER DAY
     Route: 048
     Dates: start: 202302, end: 202303

REACTIONS (5)
  - Visual impairment [Recovering/Resolving]
  - Diplopia [Recovering/Resolving]
  - Dyschromatopsia [Recovering/Resolving]
  - Dizziness [Recovering/Resolving]
  - Hydrocephalus [Recovering/Resolving]

NARRATIVE: CASE EVENT DATE: 20230201
